FAERS Safety Report 19750745 (Version 1)
Quarter: 2021Q3

REPORT INFORMATION
  Report Type: Report from Study
  Country: US (occurrence: US)
  Receive Date: 20210826
  Receipt Date: 20210826
  Transmission Date: 20211014
  Serious: Yes (Other)
  Sender: FDA-Public Use
  Company Number: US-CURIUM-2015000490

PATIENT
  Age: 54 Year
  Sex: Female

DRUGS (1)
  1. SODIUM IODIDE I?131. [Suspect]
     Active Substance: SODIUM IODIDE I-131
     Dosage: UNKNOWN
     Route: 065

REACTIONS (1)
  - Parathyroid tumour benign [Unknown]
